FAERS Safety Report 9365871 (Version 1)
Quarter: 2013Q2

REPORT INFORMATION
  Report Type: Report from Study
  Country: CA (occurrence: CA)
  Receive Date: 20130625
  Receipt Date: 20130625
  Transmission Date: 20140414
  Serious: Yes (Other)
  Sender: FDA-Public Use
  Company Number: PHHY2013CA021214

PATIENT
  Sex: Female

DRUGS (2)
  1. SANDOSTATIN LAR [Suspect]
     Indication: POST GASTRIC SURGERY SYNDROME
     Dosage: 20 MG, Q3 MONTHS
     Route: 030
     Dates: start: 20130223, end: 20130223
  2. SANDOSTATIN [Suspect]
     Indication: POST GASTRIC SURGERY SYNDROME
     Dosage: 50 UG, BID
     Route: 058
     Dates: start: 201304, end: 201305

REACTIONS (3)
  - Syncope [Recovered/Resolved]
  - Blood glucose decreased [Recovered/Resolved]
  - Blood pressure increased [Unknown]
